FAERS Safety Report 12456778 (Version 1)
Quarter: 2016Q2

REPORT INFORMATION
  Report Type: Spontaneous
  Country: ES (occurrence: ES)
  Receive Date: 20160610
  Receipt Date: 20160610
  Transmission Date: 20160815
  Serious: Yes (Hospitalization)
  Sender: FDA-Public Use
  Company Number: ES-PFIZER INC-2016290559

PATIENT
  Age: 60 Year
  Sex: Female

DRUGS (4)
  1. DOLQUINE [Concomitant]
     Active Substance: HYDROXYCHLOROQUINE SULFATE
     Dosage: 200 MG/12H
  2. METHOTREXATE SODIUM. [Suspect]
     Active Substance: METHOTREXATE SODIUM
     Indication: RHEUMATOID ARTHRITIS
     Dosage: TWO TABLETS OF 2.5 MG (5 MG), 2X/DAY
     Route: 048
     Dates: start: 20160426, end: 20160502
  3. CEMIDON B6 [Concomitant]
     Active Substance: ISONIAZID\PYRIDOXINE HYDROCHLORIDE
     Dosage: (1-0-0)
  4. DOLOCATIL [Concomitant]
     Active Substance: ACETAMINOPHEN
     Dosage: 1 TABLET/12H

REACTIONS (5)
  - Odynophagia [Recovered/Resolved]
  - Aphthous ulcer [Recovered/Resolved]
  - Incorrect dose administered [Recovered/Resolved]
  - Bone marrow failure [Recovered/Resolved]
  - Oesophageal candidiasis [Recovered/Resolved]

NARRATIVE: CASE EVENT DATE: 20160426
